FAERS Safety Report 20440034 (Version 1)
Quarter: 2022Q1

REPORT INFORMATION
  Report Type: Spontaneous
  Country: GB (occurrence: GB)
  Receive Date: 20220207
  Receipt Date: 20220207
  Transmission Date: 20220423
  Serious: Yes (Life-Threatening)
  Sender: FDA-Public Use
  Company Number: GB-Fresenius Kabi-FK202201400

PATIENT
  Age: 28 Year
  Sex: Female

DRUGS (2)
  1. FENTANYL [Suspect]
     Active Substance: FENTANYL
     Indication: Spinal anaesthesia
     Route: 050
  2. BUPIVACAINE [Suspect]
     Active Substance: BUPIVACAINE
     Indication: Spinal anaesthesia
     Dosage: HEAVY BUPIVACAINE
     Route: 050

REACTIONS (2)
  - Exposure during pregnancy [Recovered/Resolved]
  - Spinal anaesthesia [Recovered/Resolved]
